FAERS Safety Report 5728345-3 (Version None)
Quarter: 2008Q2

REPORT INFORMATION
  Report Type: 
  Country: None (occurrence: None)
  Receive Date: 20080506
  Receipt Date: 20080429
  Transmission Date: 20081010
  Serious: Yes (Death)
  Sender: FDA-Public Use
  Company Number: PHHO2008DE05511

PATIENT
  Age: 54 Year
  Sex: Male
  Weight: 55.5 kg

DRUGS (3)
  1. MYCOPHENOLATE MOFETIL [Suspect]
     Indication: HEART TRANSPLANT
     Dosage: 0.75 MG, BID
     Route: 048
     Dates: start: 20080424
  2. NEORAL [Suspect]
     Indication: HEART TRANSPLANT
     Dosage: 200 MG, BID
     Route: 048
     Dates: start: 20080422
  3. URBASON [Suspect]
     Dosage: 250 MG, QID
     Route: 042
     Dates: start: 20080422

REACTIONS (10)
  - ACUTE RESPIRATORY DISTRESS SYNDROME [None]
  - ENTEROBACTER BACTERAEMIA [None]
  - ESCHERICHIA BACTERAEMIA [None]
  - MULTI-ORGAN FAILURE [None]
  - PULMONARY FUNCTION TEST DECREASED [None]
  - PYREXIA [None]
  - RENAL FAILURE [None]
  - RIGHT VENTRICULAR FAILURE [None]
  - SEPSIS [None]
  - VASOPLEGIA SYNDROME [None]
